FAERS Safety Report 25818260 (Version 1)
Quarter: 2025Q3

REPORT INFORMATION
  Report Type: Spontaneous
  Country: GB (occurrence: GB)
  Receive Date: 20250918
  Receipt Date: 20250918
  Transmission Date: 20251020
  Serious: Yes (Other)
  Sender: ELI LILLY AND COMPANY
  Company Number: None

PATIENT
  Age: 40 Year
  Sex: Female
  Weight: 118 kg

DRUGS (12)
  1. MOUNJARO [Suspect]
     Active Substance: TIRZEPATIDE
     Indication: Weight control
     Route: 065
     Dates: start: 20250905
  2. MOUNJARO [Suspect]
     Active Substance: TIRZEPATIDE
     Indication: Weight control
     Route: 065
     Dates: start: 20250905
  3. ESTROGENS [Concomitant]
     Active Substance: ESTROGENS
     Indication: Artificial menopause
     Dates: start: 20230101
  4. PROGESTERONE [Concomitant]
     Active Substance: PROGESTERONE
     Indication: Artificial menopause
     Dates: start: 20250310
  5. ESOMEPRAZOLE [Concomitant]
     Active Substance: ESOMEPRAZOLE
     Indication: Hiatus hernia
     Dates: start: 20100911
  6. GOSERELIN [Concomitant]
     Active Substance: GOSERELIN
     Indication: Adverse drug reaction
     Dates: start: 20231101
  7. BUTYLSCOPOLAMINE BROMIDE [Concomitant]
     Active Substance: BUTYLSCOPOLAMINE BROMIDE
     Indication: Bowel movement irregularity
     Dates: start: 20101101
  8. MEBEVERINE [Concomitant]
     Active Substance: MEBEVERINE
     Indication: Irritable bowel syndrome
     Dates: start: 20101201
  9. MORPHINE SULFATE [Concomitant]
     Active Substance: MORPHINE SULFATE
     Indication: Facet joint syndrome
     Dates: start: 20241008
  10. MORPHINE SULFATE [Concomitant]
     Active Substance: MORPHINE SULFATE
     Indication: Adverse drug reaction
     Dates: start: 20231101
  11. ACETAMINOPHEN [Concomitant]
     Active Substance: ACETAMINOPHEN
     Indication: Pain
     Dates: start: 20140604
  12. NAPROXEN [Concomitant]
     Active Substance: NAPROXEN
     Indication: Pain
     Dates: start: 20170701

REACTIONS (4)
  - Abdominal rigidity [Not Recovered/Not Resolved]
  - Diarrhoea [Not Recovered/Not Resolved]
  - Vomiting [Not Recovered/Not Resolved]
  - Eructation [Not Recovered/Not Resolved]

NARRATIVE: CASE EVENT DATE: 20250905
